FAERS Safety Report 8261994-X (Version None)
Quarter: 2012Q2

REPORT INFORMATION
  Report Type: 
  Country: None (occurrence: None)
  Receive Date: 20120405
  Receipt Date: 20120404
  Transmission Date: 20120825
  Serious: Yes (Other)
  Sender: FDA-Public Use
  Company Number: PL-PFIZER INC-2012046390

PATIENT
  Age: 66 Year
  Sex: Female
  Weight: 71 kg

DRUGS (5)
  1. PREDUCTAL MR [Concomitant]
     Dosage: T
     Route: 048
  2. NORVASC [Suspect]
     Indication: HYPERTENSION
     Dosage: 5 MG, 1X/DAY
     Route: 048
     Dates: start: 20111208, end: 20111215
  3. CAVINTON FORTE [Concomitant]
     Dosage: UNK
     Route: 048
  4. SINGULAIR [Concomitant]
     Indication: CHRONIC SINUSITIS
     Dosage: 10 MG, UNK
     Route: 048
     Dates: start: 20110409
  5. FOSTEX [Concomitant]
     Indication: CHRONIC SINUSITIS
     Dosage: UNK
     Route: 055
     Dates: start: 20110409

REACTIONS (3)
  - MALAISE [None]
  - MENTAL IMPAIRMENT [None]
  - FACE OEDEMA [None]
